FAERS Safety Report 5806126-X (Version None)
Quarter: 2008Q3

REPORT INFORMATION
  Report Type: 
  Country: None (occurrence: None)
  Receive Date: 20080710
  Receipt Date: 20080701
  Transmission Date: 20090109
  Serious: Yes (Hospitalization)
  Sender: FDA-Public Use
  Company Number: IT-MERCK-0807ITA00002

PATIENT
  Age: 57 Year
  Sex: Male

DRUGS (9)
  1. PRIMAXIN [Suspect]
     Indication: APPENDICECTOMY
     Route: 041
     Dates: start: 20080607, end: 20080607
  2. EPOSERIN [Suspect]
     Indication: APPENDICECTOMY
     Route: 041
     Dates: start: 20080606, end: 20080606
  3. DEFLAMON [Suspect]
     Indication: APPENDICECTOMY
     Route: 041
     Dates: start: 20080606, end: 20080607
  4. ADDAMEL [Concomitant]
     Route: 065
  5. SOLUVIT [Concomitant]
     Route: 065
  6. ASCORBIC ACID [Concomitant]
     Route: 065
  7. PANTOPRAZOLE [Concomitant]
     Route: 065
  8. FERRIC GLUCONATE [Concomitant]
     Route: 065
  9. KANRENOL [Concomitant]
     Route: 065

REACTIONS (2)
  - ABDOMINAL DISCOMFORT [None]
  - ERYTHEMA [None]
